FAERS Safety Report 9835094 (Version 2)
Quarter: 2014Q1

REPORT INFORMATION
  Report Type: Spontaneous
  Country: NL (occurrence: NL)
  Receive Date: 20140122
  Receipt Date: 20140207
  Transmission Date: 20141002
  Serious: Yes (Other)
  Sender: FDA-Public Use
  Company Number: NL-NAPPMUNDI-GBR-2014-0016880

PATIENT
  Age: 85 Year
  Sex: Male

DRUGS (5)
  1. BUTRANS 5 MICROGRAM/UUR [Suspect]
     Indication: PRODUCT USED FOR UNKNOWN INDICATION
     Dosage: 5 MCG, Q1H
     Route: 062
     Dates: start: 20131209, end: 20131212
  2. HALDOL                             /00027401/ [Concomitant]
     Indication: PSYCHOTIC DISORDER
     Dosage: 1 MG, BID
  3. HYDROCHLOROTHIAZIDE [Concomitant]
     Indication: HYPERTENSION
     Dosage: 25 UNKNOWN, 1 DF BID
  4. AKINETON                           /00079501/ [Concomitant]
     Dosage: 2 UNKNOWN, 1 DF BID
  5. CALCICHEW [Concomitant]
     Indication: VITAMIN D DECREASED
     Dosage: 1 DF, DAILY

REACTIONS (1)
  - Delirium [Recovered/Resolved]
